FAERS Safety Report 17945378 (Version 2)
Quarter: 2020Q3

REPORT INFORMATION
  Report Type: Spontaneous
  Country: CA (occurrence: CA)
  Receive Date: 20200625
  Receipt Date: 20200709
  Transmission Date: 20201103
  Serious: Yes (Other)
  Sender: FDA-Public Use
  Company Number: CA-JNJFOC-20200629901

PATIENT
  Sex: Female

DRUGS (11)
  1. IXEKIZUMAB [Suspect]
     Active Substance: IXEKIZUMAB
  2. ETANERCEPT [Suspect]
     Active Substance: ETANERCEPT
  3. SYNTHROID [Concomitant]
     Active Substance: LEVOTHYROXINE SODIUM
  4. COSENTYX [Suspect]
     Active Substance: SECUKINUMAB
  5. OXYCODONE [Concomitant]
     Active Substance: OXYCODONE
  6. SIMPONI [Suspect]
     Active Substance: GOLIMUMAB
     Indication: PRODUCT USED FOR UNKNOWN INDICATION
     Route: 058
  7. HUMIRA [Suspect]
     Active Substance: ADALIMUMAB
     Indication: PRODUCT USED FOR UNKNOWN INDICATION
  8. CIMZIA [Suspect]
     Active Substance: CERTOLIZUMAB PEGOL
  9. CANNABIDIOL [Concomitant]
     Active Substance: CANNABIDIOL
  10. REMICADE [Suspect]
     Active Substance: INFLIXIMAB
     Indication: PRODUCT USED FOR UNKNOWN INDICATION
     Route: 042
  11. PREDNISONE. [Concomitant]
     Active Substance: PREDNISONE

REACTIONS (7)
  - Exposure during pregnancy [Recovered/Resolved]
  - Skin ulcer [Unknown]
  - Psoriasis [Unknown]
  - Arthralgia [Unknown]
  - Drug ineffective [Unknown]
  - Gastric ulcer [Unknown]
  - Liver injury [Unknown]
